FAERS Safety Report 25933702 (Version 1)
Quarter: 2025Q4

REPORT INFORMATION
  Report Type: Spontaneous
  Country: EU (occurrence: EU)
  Receive Date: 20251017
  Receipt Date: 20251017
  Transmission Date: 20260117
  Serious: Yes (Hospitalization)
  Sender: AUROBINDO
  Company Number: EU-BRISTOL-MYERS SQUIBB COMPANY-2025-130042

PATIENT
  Age: 66 Year
  Sex: Male

DRUGS (11)
  1. CARBOPLATIN [Suspect]
     Active Substance: CARBOPLATIN
     Indication: Non-small cell lung cancer
     Dosage: UNK
     Route: 065
     Dates: start: 20241024, end: 20241114
  2. OPDIVO [Suspect]
     Active Substance: NIVOLUMAB
     Indication: Non-small cell lung cancer
     Dosage: UNK
     Route: 065
     Dates: start: 20241024
  3. OPDIVO [Suspect]
     Active Substance: NIVOLUMAB
     Dosage: UNK (MAINTENANCE PHASE OF NIVOLUMAB WITH GOOD TOLERABILITY)
     Route: 065
     Dates: start: 20241227
  4. OPDIVO [Suspect]
     Active Substance: NIVOLUMAB
     Dosage: UNK (ANOTHER INFUSION OF NIVOLUMAB + IPILIMUMAB)
     Route: 065
     Dates: start: 20250320
  5. OPDIVO [Suspect]
     Active Substance: NIVOLUMAB
     Dosage: UNK
     Route: 065
     Dates: start: 202505
  6. OPDIVO [Suspect]
     Active Substance: NIVOLUMAB
     Dosage: UNK
     Route: 065
     Dates: start: 20250821
  7. YERVOY [Suspect]
     Active Substance: IPILIMUMAB
     Indication: Non-small cell lung cancer
     Dosage: UNK
     Route: 065
     Dates: start: 20241024
  8. YERVOY [Suspect]
     Active Substance: IPILIMUMAB
     Dosage: UNK (ANOTHER INFUSION OF NIVOLUMAB + IPILIMUMAB)
     Route: 065
     Dates: start: 20250320
  9. YERVOY [Suspect]
     Active Substance: IPILIMUMAB
     Dosage: UNK
     Route: 065
     Dates: start: 202505
  10. YERVOY [Suspect]
     Active Substance: IPILIMUMAB
     Dosage: UNK
     Route: 065
     Dates: start: 20250821
  11. PACLITAXEL [Suspect]
     Active Substance: PACLITAXEL
     Indication: Non-small cell lung cancer
     Dosage: UNK
     Route: 065
     Dates: start: 20241024, end: 20241114

REACTIONS (2)
  - Hypopituitarism [Unknown]
  - Secondary adrenocortical insufficiency [Unknown]

NARRATIVE: CASE EVENT DATE: 20250114
